FAERS Safety Report 9799204 (Version 2)
Quarter: 2014Q1

REPORT INFORMATION
  Report Type: Spontaneous
  Country: US (occurrence: US)
  Receive Date: 20140106
  Receipt Date: 20140106
  Transmission Date: 20141002
  Serious: No
  Sender: FDA-Public Use
  Company Number: US-GILEAD-2010-0033921

PATIENT
  Age: 52 Year
  Sex: Male

DRUGS (3)
  1. LETAIRIS [Suspect]
     Indication: PULMONARY ARTERIAL HYPERTENSION
     Route: 048
     Dates: start: 20100521
  2. TYVASO [Concomitant]
  3. ADCIRCA [Concomitant]

REACTIONS (3)
  - Epistaxis [Unknown]
  - Nausea [Unknown]
  - Headache [Unknown]
